FAERS Safety Report 9671703 (Version 1)
Quarter: 2013Q4

REPORT INFORMATION
  Report Type: Spontaneous
  Country: IN (occurrence: None)
  Receive Date: 20131104
  Receipt Date: 20131104
  Transmission Date: 20140711
  Serious: Yes (Life-Threatening)
  Sender: FDA-Public Use
  Company Number: CIP-2013-00194

PATIENT
  Age: 47 Year
  Sex: Female
  Weight: 55 kg

DRUGS (3)
  1. CARBOPLATIN [Suspect]
     Indication: OVARIAN CANCER
     Dosage: UNKNOWN, (450 MG), INTRAVENOUS (NOT OTHERWISE SPECIFIED)
     Route: 042
  2. ALBUMIN BOUND PACILTAXEL (PACILTAXEL) [Concomitant]
  3. CREAP (DARBEPOETIN ALFA) [Concomitant]

REACTIONS (6)
  - Loss of consciousness [None]
  - Dyspnoea [None]
  - Tachycardia [None]
  - Hyperhidrosis [None]
  - Rash [None]
  - Pruritus [None]
